FAERS Safety Report 5691365-1 (Version None)
Quarter: 2008Q2

REPORT INFORMATION
  Report Type: 
  Country: None (occurrence: None)
  Receive Date: 20080402
  Receipt Date: 20080325
  Transmission Date: 20081010
  Serious: Yes (Other)
  Sender: FDA-Public Use
  Company Number: FR-BAYER-200815633GPV

PATIENT
  Age: 70 Year
  Sex: Female

DRUGS (1)
  1. MAGNEVIST [Suspect]
     Indication: NUCLEAR MAGNETIC RESONANCE IMAGING
     Route: 042
     Dates: start: 20080101, end: 20080101

REACTIONS (4)
  - BONE PAIN [None]
  - INJECTION SITE ERYTHEMA [None]
  - INJECTION SITE INDURATION [None]
  - PAIN IN EXTREMITY [None]
